FAERS Safety Report 11242909 (Version 8)
Quarter: 2016Q4

REPORT INFORMATION
  Report Type: Spontaneous
  Country: JP (occurrence: JP)
  Receive Date: 20150707
  Receipt Date: 20161221
  Transmission Date: 20170206
  Serious: Yes (Life-Threatening, Hospitalization)
  Sender: FDA-Public Use
  Company Number: JP-ACTELION-A-CH2015-120145

PATIENT
  Age: 2 Year
  Sex: Male
  Weight: 10 kg

DRUGS (38)
  1. SINGULAIR [Suspect]
     Active Substance: MONTELUKAST SODIUM
     Indication: ASTHMA
     Dosage: 4 MG, UNK
     Route: 048
     Dates: start: 20150311
  2. ULCERLMIN [Suspect]
     Active Substance: SUCRALFATE
     Indication: GASTRIC ULCER
     Dosage: 0.999 G, UNK
     Route: 048
     Dates: start: 20160317
  3. SULFAMETHOXAZOLE AND TRIMETHOPRIM [Concomitant]
     Active Substance: SULFAMETHOXAZOLE\TRIMETHOPRIM
     Dosage: 0.5 MG, BID
     Route: 048
     Dates: end: 20160415
  4. POLAPREZINC [Concomitant]
     Active Substance: POLAPREZINC
  5. PROGRAF [Suspect]
     Active Substance: TACROLIMUS\TACROLIMUS ANHYDROUS
     Indication: LIVER TRANSPLANT
     Dosage: 0.5 MG, UNK
     Route: 048
     Dates: start: 20150311
  6. PREDNISOLONE. [Suspect]
     Active Substance: PREDNISOLONE
     Indication: GRAFT VERSUS HOST DISEASE
     Dosage: 2.5 MG, UNK
     Route: 048
     Dates: start: 20150904
  7. OXYGEN. [Concomitant]
     Active Substance: OXYGEN
  8. PULMICORT TURBUHALER [Suspect]
     Active Substance: BUDESONIDE
     Indication: ASTHMA
     Dosage: 0.5 MG, UNK
     Route: 055
     Dates: start: 20150311
  9. BICARBONATE [Suspect]
     Active Substance: BICARBONATE ION
     Indication: PRODUCT USED FOR UNKNOWN INDICATION
     Dosage: 0.5 G, UNK
     Route: 048
     Dates: start: 20150603
  10. GABALON [Suspect]
     Active Substance: BACLOFEN
     Indication: MUSCLE TONE DISORDER
     Dosage: UNK
     Route: 048
     Dates: start: 20151027
  11. EXCEGRAN [Suspect]
     Active Substance: ZONISAMIDE
     Indication: EPILEPSY
     Dosage: 80 MG, UNK
     Route: 048
     Dates: start: 20150917
  12. RIVOTRIL [Suspect]
     Active Substance: CLONAZEPAM
     Indication: EPILEPSY
     Dosage: 0.8 MG, UNK
     Route: 048
     Dates: start: 20151110
  13. BOTOX [Suspect]
     Active Substance: ONABOTULINUMTOXINA
     Indication: MUSCLE SPASMS
     Dosage: UNK
     Route: 030
     Dates: start: 20160317
  14. AMBROXOL [Concomitant]
     Active Substance: AMBROXOL
  15. URSODEOXYCHOLIC ACID [Suspect]
     Active Substance: URSODIOL
     Indication: LIVER DISORDER
     Dosage: 99 MG, UNK
     Route: 048
     Dates: start: 20130127
  16. LANSOPRAZOLE. [Concomitant]
     Active Substance: LANSOPRAZOLE
  17. BRAZAVES [Suspect]
     Active Substance: MIGLUSTAT
     Indication: NIEMANN-PICK DISEASE
     Dosage: 100 MG, BID
     Route: 048
     Dates: start: 20150531, end: 20160615
  18. E KEPPRA [Suspect]
     Active Substance: LEVETIRACETAM
     Indication: EPILEPSY
     Dosage: 100 MG, BID
     Route: 048
     Dates: start: 20150713, end: 20151001
  19. E KEPPRA [Suspect]
     Active Substance: LEVETIRACETAM
     Dosage: UNK
     Route: 048
     Dates: start: 20151029
  20. E KEPPRA [Suspect]
     Active Substance: LEVETIRACETAM
     Dosage: 100 MG, BID
     Route: 048
     Dates: end: 20151113
  21. GLYCYRON [Suspect]
     Active Substance: AMMONIUM GLYCYRRHIZATE\GLYCINE\METHIONINE
     Indication: LIVER DISORDER
     Dosage: 0.99 DF, UNK
     Route: 048
     Dates: start: 20140314
  22. HYALURONATE NA [Suspect]
     Active Substance: HYALURONATE SODIUM
     Indication: DRY EYE
     Dosage: UNK
     Route: 047
     Dates: start: 20150521
  23. TIZANIDINE. [Suspect]
     Active Substance: TIZANIDINE
     Dosage: UNK
     Route: 048
  24. BIOFERMIN [Suspect]
     Active Substance: BACILLUS SUBTILIS\LACTOBACILLUS ACIDOPHILUS\STREPTOCOCCUS FAECAIS
     Indication: DIARRHOEA
     Dosage: 1.2 G, UNK
     Route: 048
     Dates: start: 20160219
  25. CELLCEPT [Concomitant]
     Active Substance: MYCOPHENOLATE MOFETIL\MYCOPHENOLATE MOFETIL HYDROCHLORIDE
     Indication: GRAFT VERSUS HOST DISEASE
     Dosage: 50 MG, BID
     Route: 048
     Dates: start: 20151008, end: 20160415
  26. FAMOTIDINE. [Concomitant]
     Active Substance: FAMOTIDINE
     Dosage: 5 MG, BID
     Route: 048
     Dates: start: 20151113, end: 20160415
  27. CARBOCISTEINE [Concomitant]
     Active Substance: CARBOCYSTEINE
  28. AMOXICILLIN. [Concomitant]
     Active Substance: AMOXICILLIN
  29. BRAZAVES [Suspect]
     Active Substance: MIGLUSTAT
     Dosage: 100 MG, BID
     Route: 048
     Dates: start: 20160627
  30. URSODEOXYCHOLIC ACID [Suspect]
     Active Substance: URSODIOL
     Dosage: 150 MG, UNK
     Route: 048
  31. MARZULENE [Suspect]
     Active Substance: SODIUM GUALENATE
     Indication: GASTRODUODENAL ULCER
     Dosage: 0.498 G, UNK
     Route: 048
     Dates: start: 20150719
  32. SULFAMETHOXAZOLE AND TRIMETHOPRIM [Concomitant]
     Active Substance: SULFAMETHOXAZOLE\TRIMETHOPRIM
     Indication: PNEUMONIA ASPIRATION
     Dosage: 0.4 MG, BID
     Route: 048
     Dates: start: 20150415
  33. BACTERIA NOS [Concomitant]
  34. BRAZAVES [Suspect]
     Active Substance: MIGLUSTAT
     Dosage: 100 MG, OD
     Route: 048
     Dates: start: 20150428, end: 20150530
  35. TIZANIDINE. [Suspect]
     Active Substance: TIZANIDINE
     Indication: HYPERTONIA
     Dosage: 0.4 MG, UNK
     Route: 048
     Dates: start: 20150415
  36. FAMOTIDINE. [Concomitant]
     Active Substance: FAMOTIDINE
     Indication: GASTRIC ULCER
     Dosage: 5 MG, BID
     Route: 048
     Dates: start: 20150910, end: 20150915
  37. SODIUM ALGINATE [Concomitant]
     Active Substance: SODIUM ALGINATE
  38. HERBAL EXTRACT NOS [Concomitant]
     Active Substance: HERBALS

REACTIONS (17)
  - Neutropenia [Not Recovered/Not Resolved]
  - Urinary tract infection [Recovered/Resolved]
  - Epilepsy [Recovering/Resolving]
  - Nasopharyngitis [Recovering/Resolving]
  - Status epilepticus [Recovering/Resolving]
  - Hypercapnia [Recovering/Resolving]
  - Aspartate aminotransferase increased [Recovering/Resolving]
  - Urine leukocyte esterase positive [Recovered/Resolved]
  - Drug-induced liver injury [Recovering/Resolving]
  - Pyrexia [Recovering/Resolving]
  - White blood cell count decreased [Not Recovered/Not Resolved]
  - Culture urine positive [Recovered/Resolved]
  - Liver transplant rejection [Unknown]
  - Clonic convulsion [Recovering/Resolving]
  - Alanine aminotransferase increased [Recovering/Resolving]
  - Infection [Recovered/Resolved]
  - Neutrophil count decreased [Not Recovered/Not Resolved]

NARRATIVE: CASE EVENT DATE: 20150617
